FAERS Safety Report 4460278-5 (Version None)
Quarter: 2004Q3

REPORT INFORMATION
  Report Type: 
  Country: None (occurrence: None)
  Receive Date: 20040928
  Receipt Date: 20040227
  Transmission Date: 20050211
  Serious: No
  Sender: FDA-Public Use
  Company Number: US-GLAXOSMITHKLINE-A0500353A

PATIENT
  Age: 80 Year
  Sex: Female

DRUGS (2)
  1. SEREVENT [Suspect]
     Route: 055
  2. UNKNOWN [Concomitant]

REACTIONS (1)
  - DRY MOUTH [None]
